FAERS Safety Report 6942452-9 (Version None)
Quarter: 2010Q3

REPORT INFORMATION
  Report Type: 
  Country: None (occurrence: None)
  Receive Date: 20100826
  Receipt Date: 20100819
  Transmission Date: 20110219
  Serious: Yes (Life-Threatening, Hospitalization)
  Sender: FDA-Public Use
  Company Number: FR-JNJFOC-20100702951

PATIENT
  Sex: Male
  Weight: 62 kg

DRUGS (11)
  1. PREZISTA [Suspect]
     Indication: HIV INFECTION
     Route: 048
  2. RITONAVIR [Suspect]
     Indication: HIV INFECTION
     Route: 048
  3. TRUVADA [Suspect]
     Indication: HIV INFECTION
     Dosage: TRUVADA* : 200/245
     Route: 048
  4. BACTRIM [Concomitant]
     Indication: PROPHYLAXIS
     Route: 048
  5. AZADOSE [Concomitant]
  6. HYDROCORTISONE [Concomitant]
  7. LEVOTHYROXINE SODIUM [Concomitant]
  8. ACETAMINOPHEN [Concomitant]
  9. LEXOMIL [Concomitant]
  10. CLAFORAN [Concomitant]
     Indication: SYPHILIS
     Route: 065
  11. TOPALGIC [Concomitant]

REACTIONS (3)
  - CHRONIC HEPATIC FAILURE [None]
  - CYTOLYTIC HEPATITIS [None]
  - HEPATITIS CHOLESTATIC [None]
